FAERS Safety Report 8847857 (Version 3)
Quarter: 2013Q1

REPORT INFORMATION
  Report Type: Report from Study
  Country: DE (occurrence: DE)
  Receive Date: 20121018
  Receipt Date: 20130201
  Transmission Date: 20140127
  Serious: Yes (Hospitalization)
  Sender: FDA-Public Use
  Company Number: DE-BAXTER-2012BAX019663

PATIENT
  Sex: Male

DRUGS (16)
  1. ENDOXAN 1G [Suspect]
     Indication: B-CELL LYMPHOMA
     Route: 042
     Dates: start: 20120417
  2. ENDOXAN 1G [Suspect]
     Dosage: DOSE REDUCED
     Route: 042
     Dates: start: 20120605
  3. RITUXIMAB [Suspect]
     Indication: B-CELL LYMPHOMA
     Route: 042
     Dates: start: 20120416
  4. RITUXIMAB [Suspect]
     Dosage: DOSE REDUCED
     Route: 042
     Dates: start: 20120605
  5. DOXORUBICIN HYDROCHLORIDE [Suspect]
     Indication: B-CELL LYMPHOMA
     Route: 042
     Dates: start: 20120417
  6. DOXORUBICIN HYDROCHLORIDE [Suspect]
     Dosage: DOSE REDUCED
     Route: 042
     Dates: start: 20120605
  7. VINCRISTINE [Suspect]
     Indication: B-CELL LYMPHOMA
     Route: 042
     Dates: start: 20120417
  8. VINCRISTINE [Suspect]
     Route: 042
     Dates: start: 20120605
  9. PREDNISONE [Suspect]
     Indication: B-CELL LYMPHOMA
     Route: 065
     Dates: start: 20120417
  10. PREDNISONE [Suspect]
     Dosage: DOSE REDUCED
     Route: 065
     Dates: start: 20120605
  11. PEGFILGRASTIM [Suspect]
     Indication: B-CELL LYMPHOMA
     Route: 058
     Dates: start: 20120420
  12. LEVOTHYROXINE SODIUM [Concomitant]
     Indication: HYPERTHYROIDISM
     Route: 048
  13. DIGITOXIN [Concomitant]
     Indication: PRODUCT USED FOR UNKNOWN INDICATION
     Route: 048
  14. SIMVASTATIN [Concomitant]
     Indication: HYPERLIPIDAEMIA
     Route: 048
  15. BISOPROLOL [Concomitant]
     Indication: HYPERTENSION
     Route: 048
  16. AMIODARONE HYDROCHLORIDE [Concomitant]
     Indication: TACHYARRHYTHMIA
     Route: 048
     Dates: start: 20120505

REACTIONS (6)
  - Palmar-plantar erythrodysaesthesia syndrome [Recovered/Resolved]
  - Pain of skin [Recovered/Resolved]
  - Dehydration [Recovered/Resolved]
  - Stomatitis [Recovered/Resolved]
  - Diarrhoea [Recovered/Resolved]
  - Gastrointestinal inflammation [Recovered/Resolved]
